FAERS Safety Report 6511152-1 (Version None)
Quarter: 2009Q4

REPORT INFORMATION
  Report Type: 
  Country: None (occurrence: None)
  Receive Date: 20091217
  Receipt Date: 20091204
  Transmission Date: 20100525
  Serious: Yes (Hospitalization, Other)
  Sender: FDA-Public Use
  Company Number: 236611K09USA

PATIENT
  Age: 41 Year
  Sex: Female

DRUGS (9)
  1. REBIF [Suspect]
     Indication: MULTIPLE SCLEROSIS
     Dosage: 44 MCG, 3 IN 1 WEEKS, SUBCUTANEOUS
     Route: 058
     Dates: start: 20080501, end: 20081201
  2. UNSPECIFIED BLOOD PRESSURE MEDICATIONS [Concomitant]
  3. UNSPECIFIED MEDICATIONS(ALL OTHER THERAPEUTIC PRODUCTS) [Concomitant]
  4. DETROL [Concomitant]
  5. DITROPAN [Concomitant]
  6. KLONOPIN [Concomitant]
  7. CELEXA [Concomitant]
  8. WELLBUTRIN XR (BUPROPION HYDROCHLORIDE) [Concomitant]
  9. UNSPECIFIED MEDICATIONS [Concomitant]

REACTIONS (1)
  - APPENDICITIS [None]
